FAERS Safety Report 7114196-4 (Version None)
Quarter: 2010Q4

REPORT INFORMATION
  Report Type: 
  Country: None (occurrence: None)
  Receive Date: 20101119
  Receipt Date: 20090629
  Transmission Date: 20110411
  Serious: Yes (Death)
  Sender: FDA-Public Use
  Company Number: US-ABBOTT-09P-163-0582357-00

PATIENT
  Sex: Male
  Weight: 90.346 kg

DRUGS (15)
  1. HUMIRA [Suspect]
     Indication: CROHN'S DISEASE
     Route: 058
     Dates: start: 20080813
  2. PREDNISONE [Suspect]
     Indication: RASH PRURITIC
     Dates: start: 20090101, end: 20090401
  3. PREDNISONE [Suspect]
     Indication: ECCHYMOSIS
     Dosage: TITRATE DOWN DOSE
     Dates: start: 20090401, end: 20090424
  4. ASACOL [Concomitant]
     Indication: CROHN'S DISEASE
     Dates: end: 20090424
  5. FOLIC ACID [Concomitant]
     Indication: CROHN'S DISEASE
     Dates: end: 20090424
  6. POTASSIUM CHLORIDE [Concomitant]
     Indication: ELECTROLYTE SUBSTITUTION THERAPY
     Dates: end: 20090424
  7. PRILOSEC [Concomitant]
     Indication: PRODUCT USED FOR UNKNOWN INDICATION
  8. LORATADINE [Concomitant]
     Indication: PRODUCT USED FOR UNKNOWN INDICATION
     Dates: end: 20090424
  9. LASIX [Concomitant]
     Indication: HYPERTENSION
     Dates: end: 20090424
  10. TOPROL-XL [Concomitant]
     Indication: HYPERTENSION
     Dates: end: 20090424
  11. THIAMINE HCL [Concomitant]
     Indication: PRODUCT USED FOR UNKNOWN INDICATION
     Dates: end: 20090424
  12. SPIRONOLACTONE [Concomitant]
     Indication: HYPERTENSION
     Dates: end: 20090424
  13. NEXIUM [Concomitant]
     Indication: GASTROOESOPHAGEAL REFLUX DISEASE
     Dates: end: 20090424
  14. FLUOXETINE [Concomitant]
     Indication: DEPRESSION
     Dates: end: 20090424
  15. FERROUS SULFATE [Concomitant]
     Indication: PRODUCT USED FOR UNKNOWN INDICATION
     Dates: end: 20090424

REACTIONS (4)
  - DEATH [None]
  - ECCHYMOSIS [None]
  - HAEMATOCHEZIA [None]
  - RASH PRURITIC [None]
